FAERS Safety Report 22779014 (Version 2)
Quarter: 2023Q4

REPORT INFORMATION
  Report Type: Spontaneous
  Country: CN (occurrence: CN)
  Receive Date: 20230802
  Receipt Date: 20231110
  Transmission Date: 20240110
  Serious: Yes (Hospitalization, Other)
  Sender: FDA-Public Use
  Company Number: CN-Merck Healthcare KGaA-2023463714

PATIENT
  Age: 68 Year
  Sex: Male
  Weight: 67 kg

DRUGS (12)
  1. ERBITUX [Suspect]
     Active Substance: CETUXIMAB
     Indication: Colorectal cancer metastatic
     Dosage: 700 MG, WEEKLY (1/W)
     Route: 041
     Dates: start: 20230616, end: 20230616
  2. ERBITUX [Suspect]
     Active Substance: CETUXIMAB
     Dosage: 430 MG, WEEKLY (1/W)
     Route: 041
     Dates: start: 20230625, end: 20230625
  3. ERBITUX [Suspect]
     Active Substance: CETUXIMAB
     Dosage: 430 MG, WEEKLY (1/W)
     Route: 041
     Dates: start: 20230630, end: 20230630
  4. IRINOTECAN [Suspect]
     Active Substance: IRINOTECAN
     Indication: Colorectal cancer metastatic
     Dosage: 310 MG, 2/M
     Route: 041
     Dates: start: 20230616
  5. FLUOROURACIL [Suspect]
     Active Substance: FLUOROURACIL
     Indication: Colorectal cancer metastatic
     Dosage: 700 MG, 2/M
     Route: 040
     Dates: start: 20230616
  6. FLUOROURACIL [Suspect]
     Active Substance: FLUOROURACIL
     Dosage: 4200 MG, 2/M
     Route: 042
     Dates: start: 20230616
  7. LEUCOVORIN CALCIUM [Suspect]
     Active Substance: LEUCOVORIN CALCIUM
     Indication: Colorectal cancer metastatic
     Dosage: 700 MG, 2/M
     Route: 065
     Dates: start: 20230616
  8. OXYCODONE [Concomitant]
     Active Substance: OXYCODONE
     Indication: Back pain
     Dosage: UNK, EVERY 6 HRS
     Route: 048
     Dates: start: 20230430
  9. OXYCODONE [Concomitant]
     Active Substance: OXYCODONE
     Indication: Pain in extremity
  10. ACETAMINOPHEN [Concomitant]
     Active Substance: ACETAMINOPHEN
     Indication: Back pain
     Dosage: UNK UNK, EVERY 6 HRS
     Route: 048
     Dates: start: 20230430
  11. ACETAMINOPHEN [Concomitant]
     Active Substance: ACETAMINOPHEN
     Indication: Pain in extremity
  12. NIFEDIPINE [Concomitant]
     Active Substance: NIFEDIPINE
     Indication: Hypertension
     Dosage: 20 MG, DAILY
     Route: 048
     Dates: start: 202003

REACTIONS (3)
  - Intestinal obstruction [Recovered/Resolved]
  - White blood cell count decreased [Unknown]
  - Pneumonia [Unknown]

NARRATIVE: CASE EVENT DATE: 20230703
